APPROVED DRUG PRODUCT: TADALAFIL
Active Ingredient: TADALAFIL
Strength: 5MG
Dosage Form/Route: TABLET;ORAL
Application: A206957 | Product #001
Applicant: NORVIUM BIOSCIENCE LLC
Approved: Apr 29, 2019 | RLD: No | RS: No | Type: DISCN